FAERS Safety Report 14725713 (Version 2)
Quarter: 2018Q2

REPORT INFORMATION
  Report Type: Spontaneous
  Country: FR (occurrence: FR)
  Receive Date: 20180406
  Receipt Date: 20180509
  Transmission Date: 20180711
  Serious: Yes (Other)
  Sender: FDA-Public Use
  Company Number: FR-ASTRAZENECA-2018SE40855

PATIENT
  Age: 47 Year
  Sex: Female
  Weight: 60 kg

DRUGS (5)
  1. DEBRIDAT [Suspect]
     Active Substance: TRIMEBUTINE MALEATE
     Indication: INFLUENZA LIKE ILLNESS
     Route: 065
     Dates: start: 20171120
  2. ESOMEPRAZOLE MAGNESIUM. [Suspect]
     Active Substance: ESOMEPRAZOLE MAGNESIUM
     Indication: INFLUENZA LIKE ILLNESS
     Route: 048
     Dates: start: 20171120
  3. DERINOX SOLUTION POUR PULV???RISATION NASALE [Suspect]
     Active Substance: NAPHAZOLINE NITRATE\PHENYLEPHRINE HYDROCHLORIDE\PREDNISOLONE
     Indication: NASOPHARYNGITIS
     Route: 045
     Dates: start: 20171120, end: 20171208
  4. DOLIPRANE [Suspect]
     Active Substance: ACETAMINOPHEN
     Indication: INFLUENZA LIKE ILLNESS
     Route: 065
     Dates: start: 20171120
  5. VOGALENE [Suspect]
     Active Substance: METOPIMAZINE
     Indication: INFLUENZA LIKE ILLNESS
     Route: 065
     Dates: start: 20171120

REACTIONS (3)
  - Insomnia [Unknown]
  - Hypertensive crisis [Recovered/Resolved]
  - Nervousness [Unknown]

NARRATIVE: CASE EVENT DATE: 20171222
